FAERS Safety Report 7309575-6 (Version None)
Quarter: 2011Q1

REPORT INFORMATION
  Report Type: 
  Country: None (occurrence: None)
  Receive Date: 20110223
  Receipt Date: 20090910
  Transmission Date: 20110831
  Serious: Yes (Congenital Anomaly, Other)
  Sender: FDA-Public Use
  Company Number: JP-MERCK-0908USA00135B1

PATIENT
  Age: 0 Day
  Sex: Female

DRUGS (9)
  1. DECADRON [Suspect]
     Route: 064
     Dates: start: 20081119, end: 20081202
  2. DECADRON [Suspect]
     Route: 064
     Dates: start: 20081105, end: 20081118
  3. UTEMERIN [Concomitant]
     Route: 064
     Dates: start: 20081015, end: 20081020
  4. DECADRON [Suspect]
     Route: 064
     Dates: start: 20081203, end: 20081215
  5. DECADRON [Suspect]
     Route: 064
     Dates: start: 20081021, end: 20081104
  6. DECADRON [Suspect]
     Route: 064
     Dates: start: 20081216, end: 20081229
  7. UTEMERIN [Concomitant]
     Route: 064
     Dates: start: 20080806, end: 20081014
  8. DECADRON [Suspect]
     Indication: FOETAL DISORDER
     Route: 064
     Dates: start: 20080806, end: 20081020
  9. DECADRON [Suspect]
     Route: 064
     Dates: start: 20081230, end: 20090113

REACTIONS (13)
  - TRISOMY 21 [None]
  - PULMONARY VALVE INCOMPETENCE [None]
  - OLIGURIA [None]
  - DRUG EXPOSURE DURING PREGNANCY [None]
  - HEPATIC FIBROSIS [None]
  - RENAL IMPAIRMENT [None]
  - TRICUSPID VALVE INCOMPETENCE [None]
  - RIGHT VENTRICULAR DYSFUNCTION [None]
  - ATRIOVENTRICULAR BLOCK COMPLETE [None]
  - GENERALISED OEDEMA [None]
  - HYPEROXALURIA [None]
  - COAGULOPATHY [None]
  - SMALL FOR DATES BABY [None]
